FAERS Safety Report 24211814 (Version 1)
Quarter: 2024Q3

REPORT INFORMATION
  Report Type: Spontaneous
  Country: PK (occurrence: PK)
  Receive Date: 20240814
  Receipt Date: 20240814
  Transmission Date: 20241016
  Serious: Yes (Other)
  Sender: INSUD PHARMA
  Company Number: PK-INSUD PHARMA-2408PK06358

PATIENT

DRUGS (5)
  1. ACYCLOVIR [Suspect]
     Active Substance: ACYCLOVIR
     Indication: Herpes zoster
     Dosage: 500 MILLIGRAM INJECTION
     Route: 042
  2. ACYCLOVIR [Suspect]
     Active Substance: ACYCLOVIR
     Dosage: SWITCHED TO ORAL 800 MILLIGRAM, UNK
     Route: 048
  3. TANZO [Concomitant]
     Indication: Herpes zoster
     Dosage: 4.5 GRAM
  4. AMITRIPTYLINE HYDROCHLORIDE [Concomitant]
     Active Substance: AMITRIPTYLINE HYDROCHLORIDE
     Indication: Herpes zoster
     Dosage: 25 MILLIGRAM
  5. GABAPENTIN [Concomitant]
     Active Substance: GABAPENTIN
     Indication: Herpes zoster
     Dosage: 100 MILLIGRAM

REACTIONS (1)
  - Acute kidney injury [Recovered/Resolved]
